FAERS Safety Report 6566576-3 (Version None)
Quarter: 2010Q1

REPORT INFORMATION
  Report Type: 
  Country: None (occurrence: None)
  Receive Date: 20100127
  Receipt Date: 20100117
  Transmission Date: 20100710
  Serious: Yes (Other)
  Sender: FDA-Public Use
  Company Number: CLOF-1000777

PATIENT
  Age: 6 Year
  Sex: Female
  Weight: 16 kg

DRUGS (9)
  1. CLOFARABINE         (CLOFARABIN) [Suspect]
     Indication: ACUTE LYMPHOCYTIC LEUKAEMIA
     Dosage: 52 MG/M2, QDX5, INTRAVENOUS; 40 MG/M2, INTRAVENOUS
     Route: 042
     Dates: start: 20090224, end: 20090228
  2. CLOFARABINE         (CLOFARABIN) [Suspect]
     Indication: ACUTE LYMPHOCYTIC LEUKAEMIA
     Dosage: 52 MG/M2, QDX5, INTRAVENOUS; 40 MG/M2, INTRAVENOUS
     Route: 042
     Dates: start: 20090325, end: 20090329
  3. CLOFARABINE         (CLOFARABIN) [Suspect]
     Indication: ACUTE LYMPHOCYTIC LEUKAEMIA
     Dosage: 52 MG/M2, QDX5, INTRAVENOUS; 40 MG/M2, INTRAVENOUS
     Route: 042
     Dates: start: 20090504, end: 20090508
  4. CLOFARABINE         (CLOFARABIN) [Suspect]
     Indication: ACUTE LYMPHOCYTIC LEUKAEMIA
     Dosage: 52 MG/M2, QDX5, INTRAVENOUS; 40 MG/M2, INTRAVENOUS
     Route: 042
     Dates: start: 20090617
  5. CLOFARABINE         (CLOFARABIN) [Suspect]
     Indication: ACUTE LYMPHOCYTIC LEUKAEMIA
     Dosage: 52 MG/M2, QDX5, INTRAVENOUS; 40 MG/M2, INTRAVENOUS
     Route: 042
     Dates: start: 20090707
  6. ETOPOSIDE [Suspect]
     Indication: ACUTE LYMPHOCYTIC LEUKAEMIA
     Dosage: 150 MG/M2, QD, INTRAVENOUS; 300 MG/M2, QD, INTRAVENOUS
     Route: 042
     Dates: start: 20090617, end: 20090618
  7. ETOPOSIDE [Suspect]
     Indication: ACUTE LYMPHOCYTIC LEUKAEMIA
     Dosage: 150 MG/M2, QD, INTRAVENOUS; 300 MG/M2, QD, INTRAVENOUS
     Route: 042
     Dates: start: 20090707, end: 20090711
  8. CYTARABINE [Suspect]
     Indication: ACUTE LYMPHOCYTIC LEUKAEMIA
     Dosage: 400 MG/M2, QD, INTRAVENOUS; 400 MG/M2, QDX3, INTRAVENOUS
     Route: 042
     Dates: start: 20090617, end: 20090617
  9. CYTARABINE [Suspect]
     Indication: ACUTE LYMPHOCYTIC LEUKAEMIA
     Dosage: 400 MG/M2, QD, INTRAVENOUS; 400 MG/M2, QDX3, INTRAVENOUS
     Route: 042
     Dates: start: 20090707, end: 20090709

REACTIONS (4)
  - BONE MARROW FAILURE [None]
  - BRONCHOPULMONARY ASPERGILLOSIS [None]
  - HEPATIC FUNCTION ABNORMAL [None]
  - RASH [None]
